FAERS Safety Report 8612291 (Version 2)
Quarter: 2014Q1

REPORT INFORMATION
  Report Type: Spontaneous
  Country: US (occurrence: None)
  Receive Date: 20120323
  Receipt Date: 20130305
  Transmission Date: 20141002
  Serious: Yes (Hospitalization, Other)
  Sender: FDA-Public Use
  Company Number: 163-21880-11121075

PATIENT
  Age: 69 Year
  Sex: Male

DRUGS (5)
  1. LENALIDOMIDE [Suspect]
     Indication: PLASMA CELL MYELOMA
     Dosage: 15 MG, DAILY X D1-D14 Q 21 DAYS, PO
     Route: 048
     Dates: start: 20111101, end: 20111215
  2. BABY ASPIRIN (ACETYLSALICYLIC ACID) [Concomitant]
  3. LIPITOR (ATORVASTATIN) [Concomitant]
  4. DEXAMETHASONE [Concomitant]
  5. VELCADE (BORTEZOMIB) [Concomitant]

REACTIONS (4)
  - Infection [None]
  - Pulmonary embolism [None]
  - Presyncope [None]
  - No therapeutic response [None]
